FAERS Safety Report 24811396 (Version 1)
Quarter: 2025Q1

REPORT INFORMATION
  Report Type: Spontaneous
  Country: US (occurrence: US)
  Receive Date: 20250106
  Receipt Date: 20250106
  Transmission Date: 20250408
  Serious: No
  Sender: SANDOZ
  Company Number: US-Sandoz Group AG-00024319

PATIENT

DRUGS (1)
  1. EXELON [Suspect]
     Active Substance: RIVASTIGMINE TARTRATE
     Indication: Product used for unknown indication
     Route: 062

REACTIONS (2)
  - Hyperhidrosis [Unknown]
  - Product adhesion issue [Unknown]
